FAERS Safety Report 13710072 (Version 1)
Quarter: 2017Q3

REPORT INFORMATION
  Report Type: Spontaneous
  Country: US (occurrence: US)
  Receive Date: 20170703
  Receipt Date: 20170703
  Transmission Date: 20171127
  Serious: No
  Sender: FDA-Public Use
  Company Number: US-TEVA-707413USA

PATIENT
  Age: 53 Year
  Sex: Female
  Weight: 86.26 kg

DRUGS (1)
  1. LIDOCAINE. [Suspect]
     Active Substance: LIDOCAINE
     Indication: PAIN
     Route: 062

REACTIONS (4)
  - Application site rash [Not Recovered/Not Resolved]
  - Product quality issue [Unknown]
  - Drug effect decreased [Unknown]
  - Rash pruritic [Not Recovered/Not Resolved]

NARRATIVE: CASE EVENT DATE: 20160927
